FAERS Safety Report 24825643 (Version 1)
Quarter: 2025Q1

REPORT INFORMATION
  Report Type: Spontaneous
  Country: DK (occurrence: DK)
  Receive Date: 20250109
  Receipt Date: 20250109
  Transmission Date: 20250408
  Serious: Yes (Other)
  Sender: CHEPLAPHARM
  Company Number: None

PATIENT
  Age: 54 Year
  Sex: Female

DRUGS (1)
  1. OLANZAPINE [Suspect]
     Active Substance: OLANZAPINE
     Indication: Schizophrenia
     Dosage: DOSAGE: 1 TABLET ONCE A DAY.?STRENGTH: UNKNOWN?DAILY DOSE: 1 DOSAGE FORM

REACTIONS (2)
  - Haematemesis [Unknown]
  - Respiratory disorder [Unknown]
